FAERS Safety Report 24104670 (Version 4)
Quarter: 2024Q3

REPORT INFORMATION
  Report Type: Spontaneous
  Country: SE (occurrence: SE)
  Receive Date: 20240717
  Receipt Date: 20240810
  Transmission Date: 20241017
  Serious: Yes (Hospitalization)
  Sender: TEVA
  Company Number: None

PATIENT
  Age: 85 Year
  Sex: Female

DRUGS (19)
  1. ENALAPRIL [Suspect]
     Active Substance: ENALAPRIL
     Indication: Cardiac failure
     Route: 048
     Dates: start: 20240603, end: 20240619
  2. SULFASALAZINE [Concomitant]
     Active Substance: SULFASALAZINE
     Indication: Antiinflammatory therapy
     Dosage: SALAZOPYRIN EN
     Route: 065
     Dates: start: 20211102
  3. CYANOCOBALAMIN [Concomitant]
     Active Substance: CYANOCOBALAMIN
     Indication: Vitamin B12 deficiency
     Dosage: 1 TABLET AT 8:
     Route: 065
     Dates: start: 20231026
  4. PREDNISOLONE [Concomitant]
     Active Substance: PREDNISOLONE
     Indication: Rheumatic disorder
     Dosage: 1 TABLET AT 08.00
     Route: 065
     Dates: start: 20231026
  5. ELIQUIS [Concomitant]
     Active Substance: APIXABAN
     Indication: Thrombosis prophylaxis
     Route: 065
     Dates: start: 20181116
  6. LAXIMYL [Concomitant]
     Indication: Product used for unknown indication
     Dosage: 1 SACHET AT 8:
     Route: 065
     Dates: start: 20210224
  7. VAGIFEM [Concomitant]
     Active Substance: ESTRADIOL
     Indication: Vaginal disorder
     Dosage: ACCORDING TO SPECIAL PRESCRIPTION. 1 VAGINAL TABLET ONCE DAILY FOR 2 WEEKS. THEN 1 VAGINAL TABLET...
     Route: 065
     Dates: start: 20200706
  8. CANDESARTAN [Suspect]
     Active Substance: CANDESARTAN
     Indication: Product used for unknown indication
     Route: 065
  9. OMEPRAZOLE [Concomitant]
     Active Substance: OMEPRAZOLE
     Indication: Abdominal discomfort
     Route: 065
     Dates: start: 20200825
  10. CALCIUM CARBONATE\CHOLECALCIFEROL [Concomitant]
     Active Substance: CALCIUM CARBONATE\CHOLECALCIFEROL
     Indication: Vitamin supplementation
     Dosage: 1 CHEWABLE TABLET AT 8: KALCIPOS-D FORTE
     Route: 065
     Dates: start: 20231025
  11. ACETAMINOPHEN [Concomitant]
     Active Substance: ACETAMINOPHEN
     Indication: Pain
     Route: 065
     Dates: start: 20230927
  12. Furix [Concomitant]
     Indication: Diuretic therapy
     Dosage: 1-2 TABLETS AS NEEDED
     Route: 065
     Dates: start: 20240411
  13. METHOTREXATE [Concomitant]
     Active Substance: METHOTREXATE
     Indication: Antiinflammatory therapy
     Dosage: 8 TABLETS EVERY WEEK.
     Route: 065
     Dates: start: 20220927
  14. METOPROLOL [Concomitant]
     Active Substance: METOPROLOL
     Indication: Prophylaxis
     Route: 065
     Dates: start: 20231026
  15. FOLIC ACID [Concomitant]
     Active Substance: FOLIC ACID
     Indication: Haemolysis
     Dosage: 2 TABLETS EVERY SEVEN DAYS
     Route: 065
     Dates: start: 20220607
  16. JARDIANCE [Concomitant]
     Active Substance: EMPAGLIFLOZIN
     Indication: Cardiac failure
     Route: 065
     Dates: start: 20240516
  17. UREA [Concomitant]
     Active Substance: UREA
     Indication: Dry skin
     Dosage: 1 APPLICATION 2 TIMES DAILY
     Dates: start: 20220209
  18. PROLIA [Concomitant]
     Active Substance: DENOSUMAB
     Indication: Prophylaxis
     Route: 065
     Dates: start: 20201125
  19. OXYCODONE [Concomitant]
     Active Substance: OXYCODONE
     Indication: Pain
     Dosage: 1 TABLET IF NEEDED 2 TIMES DAILY
     Route: 065
     Dates: start: 20230929

REACTIONS (3)
  - Inappropriate antidiuretic hormone secretion [Recovered/Resolved]
  - Confusional state [Recovered/Resolved]
  - Hallucination [Recovered/Resolved]

NARRATIVE: CASE EVENT DATE: 20240619
